FAERS Safety Report 9895150 (Version 1)
Quarter: 2014Q1

REPORT INFORMATION
  Report Type: Spontaneous
  Country: US (occurrence: US)
  Receive Date: 20140213
  Receipt Date: 20140213
  Transmission Date: 20141002
  Serious: No
  Sender: FDA-Public Use
  Company Number: US-BRISTOL-MYERS SQUIBB COMPANY-18915215

PATIENT
  Age: 56 Year
  Sex: Female
  Weight: 105.21 kg

DRUGS (11)
  1. HYDROCODONE [Concomitant]
  2. ORENCIA [Suspect]
     Indication: RHEUMATOID ARTHRITIS
     Route: 058
     Dates: start: 2011
  3. AMLODIPINE [Concomitant]
  4. CITALOPRAM [Concomitant]
  5. PREDNISONE [Concomitant]
  6. ENALAPRIL [Concomitant]
  7. ESTRACE [Concomitant]
  8. METHOTREXATE [Concomitant]
  9. MULTIVITAMIN [Concomitant]
  10. FOLIC ACID [Concomitant]
  11. HYDROCHLOROTHIAZIDE [Concomitant]

REACTIONS (1)
  - Headache [Recovering/Resolving]
